FAERS Safety Report 14009544 (Version 1)
Quarter: 2017Q3

REPORT INFORMATION
  Report Type: Spontaneous
  Country: FR (occurrence: FR)
  Receive Date: 20170925
  Receipt Date: 20170925
  Transmission Date: 20171128
  Serious: Yes (Congenital Anomaly)
  Sender: FDA-Public Use
  Company Number: FR-BIOGEN-2017BI00459950

PATIENT

DRUGS (1)
  1. TYSABRI [Suspect]
     Active Substance: NATALIZUMAB
     Indication: MATERNAL EXPOSURE TIMING UNSPECIFIED
     Route: 064
     Dates: end: 20170407

REACTIONS (7)
  - Congenital cerebellar agenesis [Not Recovered/Not Resolved]
  - Multiple congenital abnormalities [Unknown]
  - Renal aplasia [Not Recovered/Not Resolved]
  - Single umbilical artery [Not Recovered/Not Resolved]
  - Septum pellucidum agenesis [Not Recovered/Not Resolved]
  - Foetal exposure during pregnancy [Unknown]
  - Growth retardation [Not Recovered/Not Resolved]

NARRATIVE: CASE EVENT DATE: 201708
